FAERS Safety Report 7546220-9 (Version None)
Quarter: 2011Q2

REPORT INFORMATION
  Report Type: 
  Country: None (occurrence: None)
  Receive Date: 20110614
  Receipt Date: 20040115
  Transmission Date: 20111010
  Serious: Yes (Hospitalization)
  Sender: FDA-Public Use
  Company Number: PHFR2003GB03597

PATIENT
  Sex: Male

DRUGS (7)
  1. CLOZAPINE [Suspect]
     Indication: SCHIZOPHRENIA
     Dosage: 500 MG/DAY
     Route: 048
     Dates: start: 19971219
  2. LITHIUM [Concomitant]
     Dosage: 800 MG/DAY
     Route: 048
  3. ATENOLOL [Concomitant]
     Dosage: 100 MG/DAY
     Route: 048
  4. METFORMIN HCL [Concomitant]
     Indication: DIABETES MELLITUS
     Dosage: 500 MG/DAY
     Route: 048
  5. OMEPRAZOLE [Concomitant]
     Dosage: 20 MG/DAY
     Route: 048
  6. SIMVASTATIN [Concomitant]
     Dosage: 100 MG/DAY
     Route: 048
  7. INSULIN [Concomitant]
     Indication: DIABETES MELLITUS

REACTIONS (4)
  - ACUTE CORONARY SYNDROME [None]
  - DYSPNOEA [None]
  - ANGINA UNSTABLE [None]
  - CHEST PAIN [None]
